FAERS Safety Report 13790193 (Version 1)
Quarter: 2017Q3

REPORT INFORMATION
  Report Type: Report from Study
  Country: UA (occurrence: UA)
  Receive Date: 20170725
  Receipt Date: 20170725
  Transmission Date: 20171127
  Serious: Yes (Other)
  Sender: FDA-Public Use
  Company Number: UA-TEVA-788797ISR

PATIENT
  Sex: Male

DRUGS (1)
  1. VAZAR [Suspect]
     Active Substance: VALSARTAN
     Route: 065

REACTIONS (4)
  - Arthralgia [Unknown]
  - Deafness [Unknown]
  - Cough [Unknown]
  - Myalgia [Unknown]
